FAERS Safety Report 10086423 (Version 2)
Quarter: 2014Q2

REPORT INFORMATION
  Report Type: Spontaneous
  Country: US (occurrence: US)
  Receive Date: 20140418
  Receipt Date: 20140520
  Transmission Date: 20141212
  Serious: No
  Sender: FDA-Public Use
  Company Number: US-TEVA-476232USA

PATIENT
  Age: 34 Year
  Sex: Female
  Weight: 63.56 kg

DRUGS (2)
  1. PARAGARD 380A [Suspect]
     Indication: CONTRACEPTION
     Route: 015
     Dates: start: 20140227, end: 20140415
  2. PARAGARD 380A [Suspect]
     Route: 015
     Dates: start: 20140415

REACTIONS (2)
  - Device expulsion [Recovered/Resolved]
  - Dysmenorrhoea [Recovered/Resolved]
